FAERS Safety Report 7162740-3 (Version None)
Quarter: 2010Q4

REPORT INFORMATION
  Report Type: 
  Country: None (occurrence: None)
  Receive Date: 20101215
  Receipt Date: 20091216
  Transmission Date: 20110411
  Serious: Yes (Other)
  Sender: FDA-Public Use
  Company Number: US-PFIZER INC-2009300329

PATIENT
  Sex: Female
  Weight: 62.585 kg

DRUGS (13)
  1. DETROL LA [Suspect]
     Dosage: 4 MG, UNK
  2. CELEBREX [Suspect]
     Dosage: UNK
  3. ALBUTEROL [Concomitant]
     Indication: ASTHMA
     Dosage: UNK
  4. WELLBUTRIN [Concomitant]
     Dosage: UNK
  5. TOPAMAX [Concomitant]
     Dosage: UNK
  6. PEPCID [Concomitant]
     Dosage: UNK
  7. NEXIUM [Concomitant]
     Dosage: UNK
  8. ESTRADIOL CIPIONATE [Concomitant]
     Dosage: UNK
  9. ADVAIR [Concomitant]
     Dosage: UNK
  10. SINGULAIR [Concomitant]
     Dosage: UNK
  11. HYDROXYZINE HYDROCHLORIDE [Concomitant]
     Dosage: UNK
  12. THEOPHYLLINE [Concomitant]
     Dosage: UNK
  13. SYNTHROID [Concomitant]
     Dosage: UNK

REACTIONS (2)
  - ANAPHYLACTIC REACTION [None]
  - THYROID OPERATION [None]
